FAERS Safety Report 8174750-8 (Version None)
Quarter: 2012Q1

REPORT INFORMATION
  Report Type: 
  Country: None (occurrence: None)
  Receive Date: 20120229
  Receipt Date: 20120216
  Transmission Date: 20120608
  Serious: Yes (Other)
  Sender: FDA-Public Use
  Company Number: DE-GLAXOSMITHKLINE-D0074524A

PATIENT
  Sex: Male

DRUGS (1)
  1. FLUTICASONE PROPIONATE [Suspect]
     Route: 055
     Dates: start: 20110301, end: 20120101

REACTIONS (6)
  - UNRESPONSIVE TO STIMULI [None]
  - IRRITABILITY [None]
  - DEPRESSION [None]
  - FATIGUE [None]
  - ABNORMAL BEHAVIOUR [None]
  - ASTHENIA [None]
